FAERS Safety Report 5594629-5 (Version None)
Quarter: 2008Q1

REPORT INFORMATION
  Report Type: 
  Country: None (occurrence: None)
  Receive Date: 20080115
  Receipt Date: 20080103
  Transmission Date: 20080703
  Serious: Yes (Life-Threatening, Hospitalization)
  Sender: FDA-Public Use
  Company Number: PAR_01835_2008

PATIENT
  Age: 65 Year
  Sex: Male

DRUGS (6)
  1. CAPOTEN [Suspect]
     Indication: RENOVASCULAR HYPERTENSION
     Dosage: (25 MG TID ORAL)
     Route: 048
     Dates: start: 19970101, end: 20070921
  2. CARVEDILOL [Suspect]
     Indication: ISCHAEMIC CARDIOMYOPATHY
     Dosage: (25 MG QD ORAL)
     Route: 048
     Dates: start: 20020101, end: 20071022
  3. METFORMIN HYDROCHLORIDE [Suspect]
     Indication: DIABETES MELLITUS
     Dosage: (850 MG BID ORAL)
     Route: 048
     Dates: start: 20030101, end: 20071022
  4. IRBESARTAN [Suspect]
     Indication: RENOVASCULAR HYPERTENSION
     Dosage: (150 MG BID ORAL)
     Route: 048
     Dates: start: 20070921, end: 20071022
  5. FLUVASTATIN SODIUM [Suspect]
     Indication: HYPERLIPIDAEMIA
     Dosage: (20 MG QD ORAL)
     Route: 048
     Dates: start: 20050101, end: 20071022
  6. ASPIRIN [Suspect]
     Indication: ISCHAEMIC CARDIOMYOPATHY
     Dosage: (100 MG QD ORAL)
     Route: 048
     Dates: start: 19970101

REACTIONS (5)
  - CARDIOGENIC SHOCK [None]
  - CORONARY ARTERY DISEASE [None]
  - HYPERKALAEMIA [None]
  - RENAL FAILURE ACUTE [None]
  - SINUS BRADYCARDIA [None]
